FAERS Safety Report 25830329 (Version 1)
Quarter: 2025Q3

REPORT INFORMATION
  Report Type: Spontaneous
  Country: US (occurrence: US)
  Receive Date: 20250922
  Receipt Date: 20250922
  Transmission Date: 20251020
  Serious: No
  Sender: AMGEN
  Company Number: US-AMGEN-USASP2025184408

PATIENT
  Age: 79 Year
  Sex: Female

DRUGS (2)
  1. RIABNI [Suspect]
     Active Substance: RITUXIMAB-ARRX
     Indication: Diffuse large B-cell lymphoma
     Route: 040
  2. RIABNI [Suspect]
     Active Substance: RITUXIMAB-ARRX
     Route: 042

REACTIONS (2)
  - Therapy cessation [Unknown]
  - Peripheral swelling [Unknown]
